FAERS Safety Report 24162674 (Version 2)
Quarter: 2024Q3

REPORT INFORMATION
  Report Type: Spontaneous
  Country: CN (occurrence: CN)
  Receive Date: 20240801
  Receipt Date: 20240807
  Transmission Date: 20241017
  Serious: Yes (Life-Threatening, Other)
  Sender: BAYER
  Company Number: CN-BAYER-2024A111311

PATIENT
  Age: 69 Year
  Sex: Male
  Weight: 56 kg

DRUGS (1)
  1. GLUCOBAY [Suspect]
     Active Substance: ACARBOSE
     Indication: Diabetes mellitus
     Dosage: 100 MG, TID
     Route: 048
     Dates: start: 20240405, end: 20240725

REACTIONS (7)
  - Hypoglycaemic coma [Recovering/Resolving]
  - Loss of consciousness [Recovered/Resolved]
  - Unresponsive to stimuli [Recovering/Resolving]
  - Fall [None]
  - Head injury [None]
  - Trismus [Recovering/Resolving]
  - Respiratory rate increased [None]

NARRATIVE: CASE EVENT DATE: 20240725
